FAERS Safety Report 22067389 (Version 1)
Quarter: 2023Q1

REPORT INFORMATION
  Report Type: Spontaneous
  Country: US (occurrence: US)
  Receive Date: 20230307
  Receipt Date: 20230307
  Transmission Date: 20230417
  Serious: No
  Sender: FDA-Public Use
  Company Number: US-009507513-2302USA004568

PATIENT
  Age: 76 Year
  Sex: Female

DRUGS (2)
  1. MOLNUPIRAVIR [Suspect]
     Active Substance: MOLNUPIRAVIR
     Indication: COVID-19
     Dosage: 800 MILLIGRAM/5 DAYS
     Route: 048
     Dates: start: 20220901, end: 20220906
  2. ELIQUIS [Suspect]
     Active Substance: APIXABAN

REACTIONS (8)
  - Alopecia [Not Recovered/Not Resolved]
  - Feeling abnormal [Recovered/Resolved]
  - Amnesia [Recovered/Resolved]
  - Fatigue [Recovered/Resolved]
  - Dry mouth [Not Recovered/Not Resolved]
  - Dehydration [Not Recovered/Not Resolved]
  - Blood creatinine abnormal [Unknown]
  - Vitamin B6 abnormal [Unknown]

NARRATIVE: CASE EVENT DATE: 20221001
